FAERS Safety Report 25263264 (Version 1)
Quarter: 2025Q2

REPORT INFORMATION
  Report Type: Spontaneous
  Country: US (occurrence: US)
  Receive Date: 20250502
  Receipt Date: 20250502
  Transmission Date: 20250717
  Serious: Yes (Other)
  Sender: MYLAN
  Company Number: US-MYLANLABS-2025M1036883

PATIENT
  Age: 64 Year
  Sex: Male

DRUGS (16)
  1. PREDNISONE [Suspect]
     Active Substance: PREDNISONE
     Indication: Pemphigus
     Dosage: 80 MILLIGRAM, QD
  2. PREDNISONE [Suspect]
     Active Substance: PREDNISONE
     Dosage: 80 MILLIGRAM, QD
     Route: 065
  3. PREDNISONE [Suspect]
     Active Substance: PREDNISONE
     Dosage: 80 MILLIGRAM, QD
     Route: 065
  4. PREDNISONE [Suspect]
     Active Substance: PREDNISONE
     Dosage: 80 MILLIGRAM, QD
  5. MYCOPHENOLATE MOFETIL [Suspect]
     Active Substance: MYCOPHENOLATE MOFETIL
     Indication: Pemphigus
     Dosage: 500 MILLIGRAM, BID
  6. MYCOPHENOLATE MOFETIL [Suspect]
     Active Substance: MYCOPHENOLATE MOFETIL
     Dosage: 500 MILLIGRAM, BID
     Route: 065
  7. MYCOPHENOLATE MOFETIL [Suspect]
     Active Substance: MYCOPHENOLATE MOFETIL
     Dosage: 500 MILLIGRAM, BID
     Route: 065
  8. MYCOPHENOLATE MOFETIL [Suspect]
     Active Substance: MYCOPHENOLATE MOFETIL
     Dosage: 500 MILLIGRAM, BID
  9. RITUXIMAB [Suspect]
     Active Substance: RITUXIMAB
     Indication: Pemphigus
  10. RITUXIMAB [Suspect]
     Active Substance: RITUXIMAB
     Route: 065
  11. RITUXIMAB [Suspect]
     Active Substance: RITUXIMAB
     Route: 065
  12. RITUXIMAB [Suspect]
     Active Substance: RITUXIMAB
  13. IMMUNE GLOBULIN NOS [Suspect]
     Active Substance: IMMUNE GLOBULIN NOS
     Indication: Pemphigus
  14. IMMUNE GLOBULIN NOS [Suspect]
     Active Substance: IMMUNE GLOBULIN NOS
     Route: 042
  15. IMMUNE GLOBULIN NOS [Suspect]
     Active Substance: IMMUNE GLOBULIN NOS
     Route: 042
  16. IMMUNE GLOBULIN NOS [Suspect]
     Active Substance: IMMUNE GLOBULIN NOS

REACTIONS (2)
  - Drug ineffective [Unknown]
  - Off label use [Unknown]
